FAERS Safety Report 25975895 (Version 1)
Quarter: 2025Q4

REPORT INFORMATION
  Report Type: Spontaneous
  Country: JP (occurrence: JP)
  Receive Date: 20251029
  Receipt Date: 20251029
  Transmission Date: 20260117
  Serious: Yes (Hospitalization)
  Sender: RECORDATI
  Company Number: JP-ORPHANEU-2025007696

PATIENT
  Sex: Male
  Weight: 0.902 kg

DRUGS (2)
  1. IBUPROFEN [Suspect]
     Active Substance: IBUPROFEN
     Indication: Patent ductus arteriosus
     Dosage: ON DAYS 6, 8, 9, 14-16
  2. INDOMETHACIN [Suspect]
     Active Substance: INDOMETHACIN
     Indication: Product used for unknown indication
     Dosage: ON DAYS 0-2 AND ADDITIONAL ON DAYS 18-20

REACTIONS (4)
  - Cardiomegaly [Unknown]
  - Neonatal tachycardia [Unknown]
  - Device dislocation [Recovered/Resolved]
  - Drug ineffective [Recovered/Resolved]
